FAERS Safety Report 24132258 (Version 7)
Quarter: 2025Q4

REPORT INFORMATION
  Report Type: Report from Study
  Country: US (occurrence: US)
  Receive Date: 20240724
  Receipt Date: 20251010
  Transmission Date: 20260117
  Serious: Yes (Hospitalization)
  Sender: ROCHE
  Company Number: US-ROCHE-3477163

PATIENT
  Age: 66 Year
  Sex: Female
  Weight: 90.72 kg

DRUGS (9)
  1. RITUXAN [Suspect]
     Active Substance: RITUXIMAB
     Indication: Rheumatoid arthritis
     Dosage: INJECTION
     Route: 042
     Dates: start: 202101, end: 20220125
  2. RITUXAN [Suspect]
     Active Substance: RITUXIMAB
     Route: 042
     Dates: start: 202103, end: 20220125
  3. LISINOPRIL [Concomitant]
     Active Substance: LISINOPRIL
     Indication: Hypertension
     Dosage: 1.5 PILLS FOR THE PAST 5 YEARS,
     Route: 048
     Dates: end: 20240718
  4. OXYCODONE [Concomitant]
     Active Substance: OXYCODONE
     Indication: Arthralgia
     Route: 048
  5. OXYCODONE [Concomitant]
     Active Substance: OXYCODONE
     Route: 048
     Dates: end: 20240718
  6. PREDNISONE [Concomitant]
     Active Substance: PREDNISONE
     Indication: Rheumatoid arthritis
     Route: 048
  7. PREDNISONE [Concomitant]
     Active Substance: PREDNISONE
     Route: 048
     Dates: end: 20240718
  8. DULOXETINE [Concomitant]
     Active Substance: DULOXETINE
     Indication: Rheumatoid arthritis
     Route: 048
  9. DULOXETINE [Concomitant]
     Active Substance: DULOXETINE
     Indication: Pain
     Route: 048
     Dates: end: 20240718

REACTIONS (16)
  - Skin exfoliation [Not Recovered/Not Resolved]
  - Blister [Unknown]
  - Fungal infection [Not Recovered/Not Resolved]
  - Eye swelling [Recovered/Resolved]
  - Oral disorder [Not Recovered/Not Resolved]
  - Hypogammaglobulinaemia [Unknown]
  - Off label use [Unknown]
  - Lip exfoliation [Recovered/Resolved]
  - Sensory disturbance [Recovered/Resolved]
  - Dysgeusia [Not Recovered/Not Resolved]
  - Oral pain [Not Recovered/Not Resolved]
  - Stomatitis [Not Recovered/Not Resolved]
  - Dental caries [Not Recovered/Not Resolved]
  - Migraine [Not Recovered/Not Resolved]
  - Illness [Not Recovered/Not Resolved]
  - Oral disorder [Not Recovered/Not Resolved]

NARRATIVE: CASE EVENT DATE: 20210101
